FAERS Safety Report 14879089 (Version 1)
Quarter: 2018Q2

REPORT INFORMATION
  Report Type: Spontaneous
  Country: BE (occurrence: BE)
  Receive Date: 20180511
  Receipt Date: 20180511
  Transmission Date: 20180711
  Serious: Yes (Other)
  Sender: FDA-Public Use
  Company Number: BE-ROCHE-2086062

PATIENT
  Age: 61 Year
  Sex: Female
  Weight: 78.1 kg

DRUGS (2)
  1. HERCEPTIN [Suspect]
     Active Substance: TRASTUZUMAB
     Indication: HER-2 POSITIVE BREAST CANCER
     Route: 058
     Dates: start: 20180305
  2. ZANTAC [Concomitant]
     Active Substance: RANITIDINE HYDROCHLORIDE
     Indication: ABDOMINAL DISCOMFORT
     Route: 042
     Dates: start: 20180305, end: 20180305

REACTIONS (6)
  - Hypotension [Recovered/Resolved]
  - Chills [Recovered/Resolved]
  - Cyanosis [Recovered/Resolved]
  - Vasoconstriction [Recovered/Resolved]
  - Pyrexia [Recovered/Resolved]
  - Adverse drug reaction [Recovered/Resolved]

NARRATIVE: CASE EVENT DATE: 20180305
